FAERS Safety Report 9601639 (Version 3)
Quarter: 2013Q4

REPORT INFORMATION
  Report Type: Spontaneous
  Country: US (occurrence: US)
  Receive Date: 20131007
  Receipt Date: 20131024
  Transmission Date: 20140711
  Serious: No
  Sender: FDA-Public Use
  Company Number: US-009507513-1310USA000460

PATIENT
  Age: 61 Year
  Sex: Male

DRUGS (1)
  1. COPPERTONE SPORT DRY LOTION SPF-30 [Suspect]
     Indication: PROPHYLAXIS
     Dosage: UNK, UNKNOWN
     Route: 061

REACTIONS (5)
  - Eye irritation [Unknown]
  - Eye pain [Recovered/Resolved]
  - Visual impairment [Unknown]
  - Hyperhidrosis [Unknown]
  - Accidental exposure to product [Unknown]
